FAERS Safety Report 14415858 (Version 1)
Quarter: 2018Q1

REPORT INFORMATION
  Report Type: Report from Study
  Country: None (occurrence: US)
  Receive Date: 20180122
  Receipt Date: 20180122
  Transmission Date: 20180509
  Serious: Yes (Other)
  Sender: FDA-Public Use
  Company Number: US-ABBVIE-18K-163-2210919-00

PATIENT
  Age: 56 Year
  Sex: Female
  Weight: 100.79 kg

DRUGS (6)
  1. CYMBALTA [Concomitant]
     Active Substance: DULOXETINE HYDROCHLORIDE
     Indication: RHEUMATOID ARTHRITIS
  2. NAPROXEN. [Concomitant]
     Active Substance: NAPROXEN
     Indication: ARTHRALGIA
  3. PROTONIX [Concomitant]
     Active Substance: PANTOPRAZOLE SODIUM
     Indication: GASTROOESOPHAGEAL REFLUX DISEASE
  4. PREDNISONE. [Concomitant]
     Active Substance: PREDNISONE
     Indication: RHEUMATOID ARTHRITIS
  5. TRAMADOL. [Concomitant]
     Active Substance: TRAMADOL
     Indication: ARTHRALGIA
  6. HUMIRA [Suspect]
     Active Substance: ADALIMUMAB
     Indication: RHEUMATOID ARTHRITIS
     Route: 058
     Dates: start: 2015, end: 20171124

REACTIONS (9)
  - Post procedural complication [Recovered/Resolved]
  - Fall [Recovered/Resolved]
  - Swelling [Recovering/Resolving]
  - Arthralgia [Recovering/Resolving]
  - Tendon rupture [Recovered/Resolved]
  - Fracture [Recovered/Resolved]
  - Wrist fracture [Recovered/Resolved]
  - Loss of anatomical alignment after fracture reduction [Recovered/Resolved]
  - Mobility decreased [Recovered/Resolved]

NARRATIVE: CASE EVENT DATE: 201712
